FAERS Safety Report 9851855 (Version 1)
Quarter: 2013Q4

REPORT INFORMATION
  Report Type: Spontaneous
  Country: US (occurrence: None)
  Receive Date: 20131127
  Receipt Date: 20131127
  Transmission Date: 20140711
  Serious: Yes (Other)
  Sender: FDA-Public Use
  Company Number: 223392LEO

PATIENT
  Age: 72 Year
  Sex: Female

DRUGS (2)
  1. PICATO [Suspect]
     Indication: ACTINIC KERATOSIS
     Route: 061
     Dates: start: 20130826, end: 20130828
  2. CRESTOR (ROSUVASTATIN CALCIUM) [Concomitant]

REACTIONS (6)
  - Ocular hyperaemia [None]
  - Photophobia [None]
  - Ocular discomfort [None]
  - Eye irritation [None]
  - Eye pain [None]
  - Application site exfoliation [None]
